FAERS Safety Report 25234638 (Version 1)
Quarter: 2025Q2

REPORT INFORMATION
  Report Type: Spontaneous
  Country: FR (occurrence: FR)
  Receive Date: 20250424
  Receipt Date: 20250424
  Transmission Date: 20250716
  Serious: Yes (Death, Hospitalization)
  Sender: ACCORD
  Company Number: None

PATIENT
  Age: 84 Year
  Sex: Female

DRUGS (12)
  1. ARIPIPRAZOLE [Suspect]
     Active Substance: ARIPIPRAZOLE
     Indication: Medication error
     Dates: start: 20240911, end: 20240911
  2. PREGABALIN [Suspect]
     Active Substance: PREGABALIN
     Indication: Medication error
     Dates: start: 20240911, end: 20240911
  3. HYDROCHLOROTHIAZIDE [Suspect]
     Active Substance: HYDROCHLOROTHIAZIDE
     Indication: Medication error
     Dates: start: 20240911, end: 20240911
  4. LAMOTRIGINE [Suspect]
     Active Substance: LAMOTRIGINE
     Indication: Medication error
     Dates: start: 20240911, end: 20240911
  5. MINERAL OIL [Suspect]
     Active Substance: MINERAL OIL
     Indication: Medication error
     Dates: start: 20240911, end: 20240911
  6. POLYETHYLENE GLYCOL 4000 [Suspect]
     Active Substance: POLYETHYLENE GLYCOL 4000
     Indication: Medication error
     Dates: start: 20240911, end: 20240911
  7. LOXAPINE [Suspect]
     Active Substance: LOXAPINE
     Indication: Medication error
     Dates: start: 20240911, end: 20240911
  8. NICARDIPINE [Suspect]
     Active Substance: NICARDIPINE
     Indication: Medication error
     Dates: start: 20240911, end: 20240911
  9. PANTOPRAZOLE [Suspect]
     Active Substance: PANTOPRAZOLE
     Indication: Medication error
     Dates: start: 20240911, end: 20240911
  10. PERINDOPRIL [Suspect]
     Active Substance: PERINDOPRIL
     Indication: Medication error
     Dates: start: 20240911, end: 20240911
  11. RILMENIDINE PHOSPHATE [Suspect]
     Active Substance: RILMENIDINE PHOSPHATE
     Indication: Medication error
     Dates: start: 20240911, end: 20240911
  12. PHLOROGLUCINOL [Suspect]
     Active Substance: PHLOROGLUCINOL
     Indication: Medication error
     Dates: start: 20240911, end: 20240911

REACTIONS (4)
  - Vomiting [Recovered/Resolved]
  - Pneumonia aspiration [Fatal]
  - Wrong patient [Fatal]
  - Product administration error [Fatal]

NARRATIVE: CASE EVENT DATE: 20240911
